FAERS Safety Report 7410149-7 (Version None)
Quarter: 2011Q2

REPORT INFORMATION
  Report Type: 
  Country: None (occurrence: None)
  Receive Date: 20110412
  Receipt Date: 20110330
  Transmission Date: 20111010
  Serious: Yes (Other)
  Sender: FDA-Public Use
  Company Number: US-MYLANLABS-2011S1006853

PATIENT
  Age: 49 Year
  Sex: Male

DRUGS (4)
  1. VANCOMYCIN [Suspect]
     Route: 065
  2. FUROSEMIDE [Concomitant]
     Route: 065
  3. COTRIM [Concomitant]
     Route: 065
  4. PIPERACILLIN W/TAZOBACTAM          /01606301/ [Concomitant]
     Route: 065

REACTIONS (1)
  - LINEAR IGA DISEASE [None]
